FAERS Safety Report 13568594 (Version 6)
Quarter: 2020Q3

REPORT INFORMATION
  Report Type: Report from Study
  Country: US (occurrence: US)
  Receive Date: 20170522
  Receipt Date: 20181126
  Transmission Date: 20201104
  Serious: Yes (Life-Threatening, Hospitalization)
  Sender: FDA-Public Use
  Company Number: US-JNJFOC-20170518584

PATIENT
  Age: 58 Year
  Sex: Female

DRUGS (18)
  1. CARFILZOMIB [Suspect]
     Active Substance: CARFILZOMIB
     Indication: PLASMA CELL MYELOMA
     Dosage: 20 MG/M2, (2 X WKLY) (C4D1 DECREASED)
     Route: 042
     Dates: start: 20170308
  2. ZOVIRAX [Concomitant]
     Active Substance: ACYCLOVIR
     Route: 048
  3. IBRUTINIB [Suspect]
     Active Substance: IBRUTINIB
     Indication: PLASMA CELL MYELOMA
     Route: 048
     Dates: start: 20170125
  4. ASPIRIN (E.C.) [Concomitant]
     Active Substance: ASPIRIN
     Route: 048
  5. MAGNESIUM [Concomitant]
     Active Substance: MAGNESIUM
     Route: 048
  6. NEURONTIN [Concomitant]
     Active Substance: GABAPENTIN
     Route: 048
     Dates: start: 20120804
  7. PRILOSEC [Concomitant]
     Active Substance: OMEPRAZOLE MAGNESIUM
     Route: 048
     Dates: start: 20120609
  8. K?DUR [Concomitant]
     Active Substance: POTASSIUM CHLORIDE
     Route: 048
  9. BACTRIM [Concomitant]
     Active Substance: SULFAMETHOXAZOLE\TRIMETHOPRIM
     Dosage: 1 TABLET (800?180MG), TID
     Route: 048
     Dates: start: 20150310
  10. CARFILZOMIB [Suspect]
     Active Substance: CARFILZOMIB
     Indication: PLASMA CELL MYELOMA
     Dosage: 20 MG/M2, 2X PER WEEK
     Route: 042
     Dates: start: 20170426, end: 20170514
  11. IBRUTINIB [Suspect]
     Active Substance: IBRUTINIB
     Indication: PLASMA CELL MYELOMA
     Dosage: 700 MG, QD (C4D1 DECREASED)
     Route: 048
     Dates: start: 20170426, end: 20170512
  12. CARFILZOMIB [Suspect]
     Active Substance: CARFILZOMIB
     Indication: PLASMA CELL MYELOMA
     Dosage: 20MG/M2
     Route: 042
     Dates: start: 20170125
  13. MULTIVITAMINS [Concomitant]
     Active Substance: VITAMINS
     Route: 048
  14. CARFILZOMIB [Suspect]
     Active Substance: CARFILZOMIB
     Indication: PLASMA CELL MYELOMA
     Dosage: 20 MG/M2, (2 X WKLY) (C4D1 DECREASED)
     Route: 042
  15. DEXAMETHASONE. [Suspect]
     Active Substance: DEXAMETHASONE
     Indication: PLASMA CELL MYELOMA
     Dosage: 20 MG, DAYS 1, 2, 8, 9, 15, 16, 22, 23
     Route: 048
     Dates: start: 20170125, end: 20170514
  16. LEVOTHROID [Concomitant]
     Active Substance: LEVOTHYROXINE SODIUM
     Route: 048
  17. VITAMIN D3 [Concomitant]
     Active Substance: CHOLECALCIFEROL
     Route: 048
  18. VITAMIN B12 [Concomitant]
     Active Substance: CYANOCOBALAMIN
     Route: 048

REACTIONS (4)
  - Pneumonia [Recovered/Resolved]
  - Thrombocytopenia [Recovered/Resolved]
  - Renal failure [Recovered/Resolved]
  - Cerebrovascular accident [Recovered/Resolved]

NARRATIVE: CASE EVENT DATE: 20170512
